FAERS Safety Report 15647864 (Version 1)
Quarter: 2018Q4

REPORT INFORMATION
  Report Type: Spontaneous
  Country: GB (occurrence: GB)
  Receive Date: 20181122
  Receipt Date: 20181122
  Transmission Date: 20190205
  Serious: Yes (Other)
  Sender: FDA-Public Use
  Company Number: GB-TEVA-2018-GB-977218

PATIENT
  Age: 41 Year
  Sex: Female

DRUGS (9)
  1. THALIDOMIDE [Suspect]
     Active Substance: THALIDOMIDE
     Indication: TUBERCULOSIS OF CENTRAL NERVOUS SYSTEM
     Route: 065
  2. THALIDOMIDE [Suspect]
     Active Substance: THALIDOMIDE
     Indication: TUBERCULOSIS OF CENTRAL NERVOUS SYSTEM
     Route: 065
  3. ISONIAZID. [Suspect]
     Active Substance: ISONIAZID
     Indication: TUBERCULOSIS OF CENTRAL NERVOUS SYSTEM
     Route: 065
  4. RIFAMPICIN [Suspect]
     Active Substance: RIFAMPIN
     Indication: TUBERCULOSIS OF CENTRAL NERVOUS SYSTEM
     Route: 065
  5. DEXAMETHASONE. [Suspect]
     Active Substance: DEXAMETHASONE
     Indication: TUBERCULOSIS OF CENTRAL NERVOUS SYSTEM
     Route: 065
  6. PROTHIONAMIDE [Concomitant]
     Active Substance: PROTIONAMIDE
     Indication: TUBERCULOSIS OF CENTRAL NERVOUS SYSTEM
     Route: 065
  7. MOXIFLOXACIN. [Suspect]
     Active Substance: MOXIFLOXACIN
     Indication: TUBERCULOSIS OF CENTRAL NERVOUS SYSTEM
     Route: 065
  8. THALIDOMIDE [Suspect]
     Active Substance: THALIDOMIDE
     Indication: TUBERCULOSIS OF CENTRAL NERVOUS SYSTEM
     Route: 065
  9. PYRAZINAMIDE. [Suspect]
     Active Substance: PYRAZINAMIDE
     Indication: TUBERCULOSIS OF CENTRAL NERVOUS SYSTEM
     Route: 065

REACTIONS (3)
  - Drug ineffective [Unknown]
  - Bradycardia [Recovering/Resolving]
  - Hepatitis [Recovering/Resolving]
